FAERS Safety Report 5472215-5 (Version None)
Quarter: 2007Q3

REPORT INFORMATION
  Report Type: 
  Country: None (occurrence: None)
  Receive Date: 20070926
  Receipt Date: 20070911
  Transmission Date: 20080115
  Serious: Yes (Death)
  Sender: FDA-Public Use
  Company Number: 2007001690

PATIENT
  Age: 79 Year
  Sex: Female
  Weight: 51.2565 kg

DRUGS (4)
  1. ERLOTINIB (ERLOTINIB HCL) (TABLET) (ERLOTINIB HCL) [Suspect]
     Indication: METASTATIC NEOPLASM
     Dosage: 150 MG (QD), ORAL
     Route: 048
     Dates: start: 20070417
  2. BEVACIZUMAB (INJECTION FOR INFUSION) [Suspect]
     Indication: NEOPLASM MALIGNANT
     Dosage: 15 MG/KG (Q3W); INTRAVENOUS
     Route: 042
     Dates: start: 20070414
  3. PACLITAXEL [Suspect]
     Dosage: 131.25 MG/M2, (Q3W), INTRAVENOUS
     Route: 042
     Dates: start: 20070417, end: 20070702
  4. CARBOPLATIN [Suspect]
     Indication: NEOPLASM MALIGNANT
     Dosage: 45 AUC (Q3W), INTRAVENOUS
     Route: 042
     Dates: start: 20070417, end: 20070702

REACTIONS (1)
  - DEATH [None]
